FAERS Safety Report 12583904 (Version 1)
Quarter: 2016Q3

REPORT INFORMATION
  Report Type: Spontaneous
  Country: NL (occurrence: NL)
  Receive Date: 20160722
  Receipt Date: 20160722
  Transmission Date: 20161109
  Serious: Yes (Other)
  Sender: FDA-Public Use
  Company Number: NL-JNJFOC-20160712595

PATIENT

DRUGS (3)
  1. THIOPURINOL [Concomitant]
     Route: 065
  2. INFLIXIMAB, RECOMBINANT [Suspect]
     Active Substance: INFLIXIMAB
     Indication: COLITIS ULCERATIVE
     Dosage: AT WEEK 0, WEEK 2 AND WEEK 6 LATER AT 8 WEEKS MAINTENANCE TREATMENT
     Route: 042
  3. MESALAZINE [Concomitant]
     Active Substance: MESALAMINE
     Route: 065

REACTIONS (3)
  - Colectomy [Unknown]
  - Drug ineffective [Unknown]
  - Adverse drug reaction [Unknown]
